FAERS Safety Report 7239097-2 (Version None)
Quarter: 2011Q1

REPORT INFORMATION
  Report Type: 
  Country: None (occurrence: None)
  Receive Date: 20110121
  Receipt Date: 20110114
  Transmission Date: 20110831
  Serious: Yes (Hospitalization, Disabling, Other)
  Sender: FDA-Public Use
  Company Number: US-US-EMD SERONO, INC.-7013558

PATIENT
  Sex: Female
  Weight: 63 kg

DRUGS (3)
  1. REBIF [Suspect]
     Indication: MULTIPLE SCLEROSIS
     Route: 058
     Dates: start: 20061229, end: 20100401
  2. REBIF [Suspect]
     Route: 058
     Dates: start: 20100101
  3. REBIF [Suspect]
     Route: 058
     Dates: start: 20100701, end: 20100101

REACTIONS (6)
  - PULMONARY THROMBOSIS [None]
  - THROMBOSIS [None]
  - BLINDNESS UNILATERAL [None]
  - MULTIPLE SCLEROSIS RELAPSE [None]
  - SPINAL DISORDER [None]
  - PYREXIA [None]
